FAERS Safety Report 19244972 (Version 2)
Quarter: 2021Q2

REPORT INFORMATION
  Report Type: Spontaneous
  Country: US (occurrence: US)
  Receive Date: 20210512
  Receipt Date: 20210602
  Transmission Date: 20210717
  Serious: No
  Sender: FDA-Public Use
  Company Number: US-NOVITIUMPHARMA-2021USNVP00042

PATIENT
  Age: 2 Year
  Sex: Male

DRUGS (1)
  1. LEVOCARNITINE SUGAR FREE ORAL SOLUTION, USP 1 G/10 ML [Suspect]
     Active Substance: LEVOCARNITINE
     Indication: KETOGENIC DIET
     Dates: start: 20210428, end: 20210430

REACTIONS (2)
  - Blood ketone body decreased [Recovering/Resolving]
  - Blood glucose increased [Recovering/Resolving]

NARRATIVE: CASE EVENT DATE: 20210428
